FAERS Safety Report 6296384-2 (Version None)
Quarter: 2009Q3

REPORT INFORMATION
  Report Type: 
  Country: None (occurrence: None)
  Receive Date: 20090804
  Receipt Date: 20090723
  Transmission Date: 20100115
  Serious: Yes (Other)
  Sender: FDA-Public Use
  Company Number: GB-ROCHE-646491

PATIENT
  Age: 23 Year
  Sex: Male

DRUGS (1)
  1. ROACCUTANE [Suspect]
     Indication: DRUG USE FOR UNKNOWN INDICATION
     Dosage: PATIENT WAS TAKING DRUG FOR 12 WEEKS AT THE TIME OF REPORT.
     Route: 065

REACTIONS (1)
  - TINNITUS [None]
